FAERS Safety Report 13813767 (Version 1)
Quarter: 2017Q3

REPORT INFORMATION
  Report Type: Spontaneous
  Country: US (occurrence: US)
  Receive Date: 20170731
  Receipt Date: 20170731
  Transmission Date: 20171127
  Serious: Yes (Other)
  Sender: FDA-Public Use
  Company Number: US-HETERO CORPORATE-HET2017US00014

PATIENT
  Age: 44 Year
  Sex: Female

DRUGS (5)
  1. CITALOPRAM [Suspect]
     Active Substance: CITALOPRAM HYDROBROMIDE
     Indication: ANXIETY
     Dosage: 20 MICROGRAM, Q.D.
     Route: 065
  2. IVACAFTOR W/LUMACAFTOR [Suspect]
     Active Substance: IVACAFTOR\LUMACAFTOR
     Indication: CYSTIC FIBROSIS
     Dosage: 250 MICROGRAM, QD
     Route: 065
  3. LORAZEPAM. [Suspect]
     Active Substance: LORAZEPAM
     Indication: DEPRESSION
  4. CITALOPRAM [Suspect]
     Active Substance: CITALOPRAM HYDROBROMIDE
     Indication: DEPRESSION
     Dosage: 40 MICROGRAM, Q
     Route: 065
  5. LORAZEPAM. [Suspect]
     Active Substance: LORAZEPAM
     Indication: ANXIETY
     Dosage: 2 MICROGRAM, T.I.D.
     Route: 065

REACTIONS (5)
  - Depression [Recovering/Resolving]
  - Cough [Recovering/Resolving]
  - Sputum increased [Recovering/Resolving]
  - Anxiety [Recovering/Resolving]
  - Condition aggravated [Recovering/Resolving]
